FAERS Safety Report 4825454-8 (Version None)
Quarter: 2005Q4

REPORT INFORMATION
  Report Type: 
  Country: None (occurrence: None)
  Receive Date: 20051111
  Receipt Date: 20050419
  Transmission Date: 20060501
  Serious: Yes (Hospitalization, Disabling)
  Sender: FDA-Public Use
  Company Number: US-MERCK-0504USA03742

PATIENT
  Age: 57 Year
  Sex: Female
  Weight: 73 kg

DRUGS (8)
  1. PREMARIN [Concomitant]
     Route: 065
     Dates: start: 19980801, end: 20010913
  2. LIPITOR [Concomitant]
     Indication: BLOOD CHOLESTEROL INCREASED
     Route: 065
  3. DYAZIDE [Concomitant]
     Indication: BLOOD PRESSURE
     Route: 065
     Dates: start: 20030201, end: 20050612
  4. HYDROCHLOROTHIAZIDE [Concomitant]
     Indication: BLOOD PRESSURE
     Route: 065
     Dates: start: 19970101, end: 20021201
  5. NAPROXEN [Concomitant]
     Route: 065
     Dates: start: 20030104
  6. ALEVE [Concomitant]
     Route: 065
     Dates: start: 20030524
  7. VIOXX [Suspect]
     Indication: BACK PAIN
     Route: 048
     Dates: start: 20010101, end: 20041001
  8. VIOXX [Suspect]
     Indication: HAEMATOMA
     Route: 048
     Dates: start: 20010101, end: 20041001

REACTIONS (7)
  - ANGINA PECTORIS [None]
  - APPENDIX DISORDER [None]
  - CORONARY ARTERY DISEASE [None]
  - DEPRESSION [None]
  - HERNIA [None]
  - MYOCARDIAL INFARCTION [None]
  - OESOPHAGEAL DISORDER [None]
